FAERS Safety Report 15233890 (Version 1)
Quarter: 2018Q3

REPORT INFORMATION
  Report Type: Spontaneous
  Country: FR (occurrence: FR)
  Receive Date: 20180802
  Receipt Date: 20180802
  Transmission Date: 20181010
  Serious: Yes (Life-Threatening)
  Sender: FDA-Public Use
  Company Number: PHHY2018FR063637

PATIENT
  Age: 53 Year
  Sex: Female

DRUGS (13)
  1. AMOXICILLIN. [Suspect]
     Active Substance: AMOXICILLIN
     Indication: ALLERGY TEST
     Dosage: UNK
     Route: 023
  2. CLOXACILLIN SODIUM [Suspect]
     Active Substance: CLOXACILLIN SODIUM
     Indication: ALLERGY TEST
     Dosage: UNK
     Route: 023
  3. CEFIXIME. [Suspect]
     Active Substance: CEFIXIME
     Indication: ALLERGY TEST
     Dosage: 176 MG, UNK
     Route: 048
     Dates: start: 20180328, end: 20180328
  4. TAZOBACTAM [Suspect]
     Active Substance: TAZOBACTAM
     Indication: ALLERGY TEST
     Dosage: UNK
     Route: 023
  5. SERESTA [Concomitant]
     Active Substance: OXAZEPAM
     Indication: PRODUCT USED FOR UNKNOWN INDICATION
     Dosage: UNK
     Route: 065
  6. CEFTRIAXONE SODIUM. [Suspect]
     Active Substance: CEFTRIAXONE SODIUM
     Indication: ALLERGY TEST
     Dosage: UNK
     Route: 023
  7. PIPERACILLIN [Suspect]
     Active Substance: PIPERACILLIN
     Indication: ALLERGY TEST
     Route: 023
  8. CEFAZOLINE [Suspect]
     Active Substance: CEFAZOLIN SODIUM
     Indication: ALLERGY TEST
     Dosage: UNK
     Route: 023
  9. CEFOTAXIME SODIUM [Suspect]
     Active Substance: CEFOTAXIME SODIUM
     Indication: ALLERGY TEST
     Dosage: UNK
     Route: 023
  10. MONOCRIXO [Concomitant]
     Active Substance: TRAMADOL HYDROCHLORIDE
     Indication: PRODUCT USED FOR UNKNOWN INDICATION
     Dosage: UNK
     Route: 065
  11. FLUOXETINE [Concomitant]
     Active Substance: FLUOXETINE HYDROCHLORIDE
     Indication: PRODUCT USED FOR UNKNOWN INDICATION
     Dosage: UNK
     Route: 065
  12. CEFUROXIME. [Suspect]
     Active Substance: CEFUROXIME
     Indication: ALLERGY TEST
     Dosage: UNK
     Route: 023
  13. PENICILLINE G SODIQUE [Suspect]
     Active Substance: PENICILLIN G SODIUM
     Indication: ALLERGY TEST
     Dosage: UNK
     Route: 023

REACTIONS (1)
  - Angioedema [Recovered/Resolved]

NARRATIVE: CASE EVENT DATE: 20180328
